FAERS Safety Report 6391411-6 (Version None)
Quarter: 2009Q4

REPORT INFORMATION
  Report Type: 
  Country: None (occurrence: None)
  Receive Date: 20091007
  Receipt Date: 20090929
  Transmission Date: 20100525
  Serious: No
  Sender: FDA-Public Use
  Company Number: US-JNJFOC-20091000934

PATIENT
  Sex: Female

DRUGS (3)
  1. DURAGESIC MATRIX [Suspect]
     Indication: NEOPLASM MALIGNANT
     Dosage: 2 75 UG/HR PATCHES
     Route: 062
  2. DURAGESIC-100 [Suspect]
     Route: 062
  3. DURAGESIC-100 [Suspect]
     Indication: NEOPLASM MALIGNANT
     Route: 062

REACTIONS (3)
  - DRUG INEFFECTIVE [None]
  - INAPPROPRIATE SCHEDULE OF DRUG ADMINISTRATION [None]
  - WITHDRAWAL SYNDROME [None]
